FAERS Safety Report 13032792 (Version 1)
Quarter: 2016Q4

REPORT INFORMATION
  Report Type: Report from Study
  Country: US (occurrence: US)
  Receive Date: 20161215
  Receipt Date: 20161215
  Transmission Date: 20170207
  Serious: Yes (Hospitalization)
  Sender: FDA-Public Use
  Company Number: US-ACTELION-A-US2016-146925

PATIENT
  Age: 38 Year
  Sex: Female

DRUGS (5)
  1. TRACLEER [Suspect]
     Active Substance: BOSENTAN
     Indication: HEART DISEASE CONGENITAL
     Dosage: 125 MG, BID
     Route: 048
     Dates: start: 20160219
  2. XARELTO [Concomitant]
     Active Substance: RIVAROXABAN
  3. SILDENAFIL. [Concomitant]
     Active Substance: SILDENAFIL
  4. PROGESTERONE. [Concomitant]
     Active Substance: PROGESTERONE
  5. IRON [Concomitant]
     Active Substance: IRON

REACTIONS (2)
  - Transfusion [Unknown]
  - Haemorrhage [Unknown]

NARRATIVE: CASE EVENT DATE: 201612
